FAERS Safety Report 22611338 (Version 1)
Quarter: 2023Q2

REPORT INFORMATION
  Report Type: Spontaneous
  Country: US (occurrence: US)
  Receive Date: 20230616
  Receipt Date: 20230616
  Transmission Date: 20230722
  Serious: Yes (Other)
  Sender: FDA-Public Use
  Company Number: US-MYLANLABS-2023M1062826

PATIENT
  Age: 42 Year
  Sex: Female
  Weight: 68.04 kg

DRUGS (1)
  1. NORETHINDRONE [Suspect]
     Active Substance: NORETHINDRONE
     Indication: Contraception
     Dosage: 0.35 MILLIGRAM
     Route: 048
     Dates: start: 20230326

REACTIONS (3)
  - Haemorrhage [Not Recovered/Not Resolved]
  - Back pain [Not Recovered/Not Resolved]
  - Muscle spasms [Not Recovered/Not Resolved]

NARRATIVE: CASE EVENT DATE: 20230501
